FAERS Safety Report 13510924 (Version 1)
Quarter: 2017Q2

REPORT INFORMATION
  Report Type: Spontaneous
  Country: US (occurrence: US)
  Receive Date: 20170503
  Receipt Date: 20170503
  Transmission Date: 20170830
  Serious: Yes (Disabling)
  Sender: FDA-Public Use
  Company Number: None

PATIENT
  Age: 35 Year
  Sex: Female
  Weight: 56.25 kg

DRUGS (6)
  1. MULTI VITAMIN [Concomitant]
     Active Substance: VITAMINS
  2. HUMIRA [Suspect]
     Active Substance: ADALIMUMAB
  3. ENTYVIO [Suspect]
     Active Substance: VEDOLIZUMAB
  4. REMICADE [Suspect]
     Active Substance: INFLIXIMAB
     Indication: CROHN^S DISEASE
  5. 6MP [Concomitant]
     Active Substance: MERCAPTOPURINE
  6. BABY ASPIRIN [Concomitant]
     Active Substance: ASPIRIN

REACTIONS (6)
  - Arthralgia [None]
  - Rash [None]
  - Lupus-like syndrome [None]
  - Movement disorder [None]
  - Abasia [None]
  - Fatigue [None]

NARRATIVE: CASE EVENT DATE: 20160810
